FAERS Safety Report 23890972 (Version 1)
Quarter: 2024Q2

REPORT INFORMATION
  Report Type: Spontaneous
  Country: US (occurrence: US)
  Receive Date: 20240523
  Receipt Date: 20240523
  Transmission Date: 20240715
  Serious: Yes (Hospitalization, Other)
  Sender: FDA-Public Use
  Company Number: US-MLMSERVICE-20240513-PI060334-00295-1

PATIENT
  Age: 28 Year
  Sex: Male

DRUGS (2)
  1. BUPROPION [Interacting]
     Active Substance: BUPROPION
     Indication: Antidepressant therapy
     Route: 065
  2. SERTRALINE [Interacting]
     Active Substance: SERTRALINE HYDROCHLORIDE
     Indication: Antidepressant therapy
     Route: 065

REACTIONS (3)
  - Drug interaction [Recovered/Resolved]
  - Herbal interaction [Recovered/Resolved]
  - Serotonin syndrome [Recovered/Resolved]
